FAERS Safety Report 17827558 (Version 4)
Quarter: 2021Q3

REPORT INFORMATION
  Report Type: Report from Study
  Country: None (occurrence: IL)
  Receive Date: 20200527
  Receipt Date: 20210810
  Transmission Date: 20211014
  Serious: Yes (Hospitalization, Other)
  Sender: FDA-Public Use
  Company Number: IL-ABBVIE-19K-082-2909299-00

PATIENT
  Age: 83 Year
  Sex: Male
  Weight: 57 kg

DRUGS (17)
  1. VENCLEXTA [Suspect]
     Active Substance: VENETOCLAX
     Dosage: REASON OF DOSE CHANGE ? TITRATION SCHEME
     Route: 048
     Dates: start: 20190715, end: 20190721
  2. VENCLEXTA [Suspect]
     Active Substance: VENETOCLAX
     Route: 048
     Dates: start: 20201122, end: 20201129
  3. VENCLEXTA [Suspect]
     Active Substance: VENETOCLAX
     Route: 048
     Dates: start: 20200430, end: 202005
  4. VENCLEXTA [Suspect]
     Active Substance: VENETOCLAX
     Route: 048
     Dates: start: 20200521, end: 2020
  5. JANUET [Concomitant]
     Active Substance: METFORMIN HYDROCHLORIDE\SITAGLIPTIN PHOSPHATE
     Indication: DIABETES MELLITUS
     Dates: start: 20190523
  6. EZETROL [Concomitant]
     Active Substance: EZETIMIBE
     Indication: MYOCARDIAL ISCHAEMIA
     Dates: start: 20190225
  7. PFIZER?BIONTECH COVID?19 VACCINE [Concomitant]
     Active Substance: TOZINAMERAN
     Indication: COVID-19 IMMUNISATION
     Dosage: PFIZER
     Route: 030
     Dates: start: 20210124, end: 20210124
  8. PFIZER?BIONTECH COVID?19 VACCINE [Concomitant]
     Active Substance: TOZINAMERAN
     Dosage: PFIZER
     Route: 030
     Dates: start: 20210131, end: 20210131
  9. VENCLEXTA [Suspect]
     Active Substance: VENETOCLAX
     Route: 048
     Dates: start: 20200729, end: 2020
  10. TOVIAZ [Concomitant]
     Active Substance: FESOTERODINE FUMARATE
     Indication: NEPHROLITHIASIS
     Dates: start: 20200109
  11. TRITACE [Concomitant]
     Active Substance: RAMIPRIL
     Indication: MYOCARDIAL ISCHAEMIA
     Dates: start: 20200206
  12. VENCLEXTA [Suspect]
     Active Substance: VENETOCLAX
     Indication: CHRONIC LYMPHOCYTIC LEUKAEMIA
     Dosage: REASON OF DOSE CHANGE ? TITRATION SCHEME
     Route: 048
     Dates: start: 20190701, end: 20190707
  13. VENCLEXTA [Suspect]
     Active Substance: VENETOCLAX
     Dosage: MODIFICATION TO THE DAILY DOSE RAMP UP
     Route: 048
     Dates: start: 20201130, end: 20201221
  14. TAMSULIN [Concomitant]
     Indication: PROSTATE CANCER
     Dates: start: 20170625
  15. VENCLEXTA [Suspect]
     Active Substance: VENETOCLAX
     Dosage: REASON OF DOSE CHANGE ? TITRATION SCHEME
     Route: 048
     Dates: start: 20190708, end: 20190714
  16. VENCLEXTA [Suspect]
     Active Substance: VENETOCLAX
     Dosage: REASON OF DOSE CHANGE ? TITRATION SCHEME
     Route: 048
     Dates: start: 20190722, end: 20190728
  17. FOLEX [Concomitant]
     Indication: ANAEMIA
     Dates: start: 20190505

REACTIONS (6)
  - Urosepsis [Recovered/Resolved]
  - Urinary tract infection [Recovered/Resolved]
  - Neutropenia [Recovered/Resolved]
  - Nephrolithiasis [Unknown]
  - Neutropenia [Recovered/Resolved]
  - Prostate cancer [Unknown]

NARRATIVE: CASE EVENT DATE: 20190812
